FAERS Safety Report 14588346 (Version 1)
Quarter: 2018Q1

REPORT INFORMATION
  Report Type: Report from Study
  Country: FR (occurrence: FR)
  Receive Date: 20180301
  Receipt Date: 20180301
  Transmission Date: 20180509
  Serious: Yes (Other)
  Sender: FDA-Public Use
  Company Number: FR-GILEAD-2018-0322727

PATIENT

DRUGS (2)
  1. INTELENCE [Concomitant]
     Active Substance: ETRAVIRINE
     Indication: HIV INFECTION
     Dosage: UNK
  2. EMTRICITABINE/TENOFOVIR DISOPROXIL FUMARATE [Suspect]
     Active Substance: EMTRICITABINE\TENOFOVIR DISOPROXIL FUMARATE
     Indication: HIV INFECTION
     Dosage: UNK
     Route: 065

REACTIONS (9)
  - Multiple sclerosis [Not Recovered/Not Resolved]
  - Disturbance in attention [Unknown]
  - Trigeminal neuralgia [Unknown]
  - Viral load increased [Unknown]
  - Muscular weakness [Unknown]
  - Memory impairment [Unknown]
  - Balance disorder [Unknown]
  - Visual impairment [Unknown]
  - Gait disturbance [Unknown]
